FAERS Safety Report 6179818-3 (Version None)
Quarter: 2009Q2

REPORT INFORMATION
  Report Type: 
  Country: None (occurrence: None)
  Receive Date: 20090505
  Receipt Date: 20090505
  Transmission Date: 20091009
  Serious: Yes (Hospitalization)
  Sender: FDA-Public Use
  Company Number: JP-B.I. PHARMACEUTICALS,INC./RIDGEFIELD-2006-BP-05942NB

PATIENT
  Sex: Male
  Weight: 66.5 kg

DRUGS (2)
  1. MICARDIS [Suspect]
     Indication: HYPERTENSION
     Dosage: 40MG
     Route: 048
     Dates: start: 20060424, end: 20060430
  2. ZITHROMAX [Concomitant]
     Route: 048
     Dates: start: 20060501

REACTIONS (1)
  - INTERSTITIAL LUNG DISEASE [None]
